FAERS Safety Report 4893073-3 (Version None)
Quarter: 2005Q4

REPORT INFORMATION
  Report Type: 
  Country: None (occurrence: None)
  Receive Date: 20051220
  Receipt Date: 20050908
  Transmission Date: 20060501
  Serious: Yes (Other)
  Sender: FDA-Public Use
  Company Number: 417211

PATIENT
  Age: 54 Year
  Sex: Female
  Weight: 113.4 kg

DRUGS (3)
  1. BONIVA [Suspect]
     Indication: OSTEOPOROSIS
     Dosage: 150 MG 1 PER MONTH ORAL
     Route: 048
     Dates: start: 20050901
  2. TRICOR [Concomitant]
  3. PREMARIN (ESTGOGENS, CONJUGATED) [Concomitant]

REACTIONS (2)
  - DYSPHAGIA [None]
  - SUFFOCATION FEELING [None]
